FAERS Safety Report 23046101 (Version 1)
Quarter: 2023Q4

REPORT INFORMATION
  Report Type: Spontaneous
  Country: CN (occurrence: CN)
  Receive Date: 20231009
  Receipt Date: 20231009
  Transmission Date: 20240110
  Serious: Yes (Life-Threatening, Hospitalization)
  Sender: FDA-Public Use
  Company Number: CN-OTSUKA-2023_026118

PATIENT
  Age: 68 Year
  Sex: Female
  Weight: 53 kg

DRUGS (2)
  1. SAMSCA [Suspect]
     Active Substance: TOLVAPTAN
     Indication: Type 2 diabetes mellitus
     Dosage: 8 MG, BID
     Route: 048
     Dates: start: 20230915, end: 20230917
  2. SAMSCA [Suspect]
     Active Substance: TOLVAPTAN
     Indication: Electrolyte imbalance

REACTIONS (2)
  - Pyrexia [Recovering/Resolving]
  - Product use in unapproved indication [Unknown]

NARRATIVE: CASE EVENT DATE: 20230915
